FAERS Safety Report 4382926-0 (Version None)
Quarter: 2004Q2

REPORT INFORMATION
  Report Type: 
  Country: None (occurrence: None)
  Receive Date: 20040617
  Receipt Date: 20040604
  Transmission Date: 20050107
  Serious: Yes (Death, Other)
  Sender: FDA-Public Use
  Company Number: 001-0945-M0200490

PATIENT
  Sex: Male

DRUGS (3)
  1. NEURONTIN [Suspect]
     Indication: NEUROPATHY
     Dates: end: 20020409
  2. ZOLOFT [Suspect]
     Indication: PAIN
     Dosage: 75 MG (DAILY),
     Dates: start: 20020405, end: 20020409
  3. OXYCODONE HCL [Suspect]
     Indication: NEUROPATHY

REACTIONS (10)
  - ABDOMINAL PAIN [None]
  - CHOLECYSTECTOMY [None]
  - COMPLETED SUICIDE [None]
  - DRUG EFFECT DECREASED [None]
  - EATING DISORDER [None]
  - GASTROINTESTINAL DISORDER [None]
  - GUN SHOT WOUND [None]
  - IDIOSYNCRATIC DRUG REACTION [None]
  - PAIN [None]
  - SELF-MEDICATION [None]
